FAERS Safety Report 7366398-X (Version None)
Quarter: 2011Q1

REPORT INFORMATION
  Report Type: 
  Country: None (occurrence: None)
  Receive Date: 20110322
  Receipt Date: 20110310
  Transmission Date: 20110831
  Serious: Yes (Hospitalization, Other)
  Sender: FDA-Public Use
  Company Number: US-PAR PHARMACEUTICAL, INC-2010SCPR002356

PATIENT
  Age: 20 Year
  Sex: Male

DRUGS (6)
  1. CEFTRIAXONE [Suspect]
     Indication: TENOSYNOVITIS
     Dosage: ONE DOSE
     Route: 065
  2. VANCOMYCIN [Suspect]
     Dosage: UNK
     Route: 065
  3. SEPTRA [Suspect]
     Indication: TENOSYNOVITIS
     Dosage: UNK
     Route: 065
  4. VANCOMYCIN [Suspect]
     Indication: TENOSYNOVITIS
     Dosage: ONE PREOPERATIVE DOSE
     Route: 065
  5. DOXYCYCLINE [Suspect]
     Indication: TENOSYNOVITIS
     Dosage: UNK
     Route: 065
  6. DOXYCYCLINE [Suspect]
     Dosage: UNK
     Route: 065

REACTIONS (3)
  - DISSEMINATED INTRAVASCULAR COAGULATION [None]
  - DRUG RASH WITH EOSINOPHILIA AND SYSTEMIC SYMPTOMS [None]
  - HUMAN HERPESVIRUS 6 INFECTION [None]
